FAERS Safety Report 7422964-4 (Version None)
Quarter: 2011Q2

REPORT INFORMATION
  Report Type: 
  Country: None (occurrence: None)
  Receive Date: 20110419
  Receipt Date: 20110411
  Transmission Date: 20111010
  Serious: Yes (Hospitalization, Other)
  Sender: FDA-Public Use
  Company Number: DE-JNJFOC-20110405533

PATIENT
  Sex: Male
  Weight: 90 kg

DRUGS (7)
  1. ASPIRIN PLUS C [Suspect]
     Indication: SUICIDE ATTEMPT
     Dosage: 2 TABLETS
     Route: 048
  2. ERYFER [Suspect]
     Indication: SUICIDE ATTEMPT
     Dosage: 9 CAPSULES
     Route: 048
  3. IMODIUM [Suspect]
     Route: 048
  4. MAGNESIUM VERLA [Suspect]
     Indication: SUICIDE ATTEMPT
     Dosage: 25 COATED TABLETS
     Route: 048
  5. IMODIUM [Suspect]
     Indication: SUICIDE ATTEMPT
     Dosage: 8 TABLETS
     Route: 048
  6. PARACETAMOL [Suspect]
     Indication: SUICIDE ATTEMPT
     Dosage: 7 TABLETS
     Route: 065
  7. IBUPROFEN [Suspect]
     Indication: SUICIDE ATTEMPT
     Dosage: 20 TABLETS
     Route: 048

REACTIONS (4)
  - MULTIPLE DRUG OVERDOSE INTENTIONAL [None]
  - SUICIDE ATTEMPT [None]
  - ABDOMINAL PAIN UPPER [None]
  - VOMITING [None]
